FAERS Safety Report 5366403-6 (Version None)
Quarter: 2007Q2

REPORT INFORMATION
  Report Type: 
  Country: None (occurrence: None)
  Receive Date: 20070622
  Receipt Date: 20070614
  Transmission Date: 20071010
  Serious: Yes (Other)
  Sender: FDA-Public Use
  Company Number: PHEH2007US08813

PATIENT
  Sex: Female

DRUGS (2)
  1. ZELNORM [Suspect]
     Indication: IRRITABLE BOWEL SYNDROME
     Dosage: 6 MG, QD
     Route: 048
  2. ZELNORM [Suspect]
     Dosage: 6 MG, QD
     Route: 048
     Dates: start: 20070101, end: 20070301

REACTIONS (5)
  - BILIARY DYSKINESIA [None]
  - CHEST PAIN [None]
  - CHOLECYSTECTOMY [None]
  - DRUG INEFFECTIVE [None]
  - STRESS [None]
